FAERS Safety Report 4609001-1 (Version None)
Quarter: 2005Q1

REPORT INFORMATION
  Report Type: 
  Country: None (occurrence: None)
  Receive Date: 20050311
  Receipt Date: 20050223
  Transmission Date: 20050727
  Serious: Yes (Hospitalization)
  Sender: FDA-Public Use
  Company Number: 2004BI000254

PATIENT
  Age: 41 Year
  Sex: Female
  Weight: 147.8726 kg

DRUGS (11)
  1. AVONEX [Suspect]
     Indication: MULTIPLE SCLEROSIS
     Dosage: SEE IMAGE
     Route: 030
     Dates: start: 20040325, end: 20040401
  2. AVONEX [Suspect]
     Indication: MULTIPLE SCLEROSIS
     Dosage: SEE IMAGE
     Route: 030
     Dates: start: 20040402, end: 20040409
  3. AVONEX [Suspect]
     Indication: MULTIPLE SCLEROSIS
     Dosage: SEE IMAGE
     Route: 030
     Dates: start: 20040410, end: 20040501
  4. AVONEX [Suspect]
     Indication: MULTIPLE SCLEROSIS
     Dosage: SEE IMAGE
     Route: 030
     Dates: start: 20040601
  5. HYDROCODONE BITARTRATE [Concomitant]
  6. PROMETHAZINE [Concomitant]
  7. IRON [Concomitant]
  8. QUININE SULFATE [Concomitant]
  9. TYLENOL (CAPLET) [Concomitant]
  10. NAPROXEN [Concomitant]
  11. MIRAPEX [Concomitant]

REACTIONS (8)
  - ABDOMINAL PAIN [None]
  - ANAEMIA [None]
  - BILIARY TRACT DISORDER [None]
  - MEAN CELL VOLUME DECREASED [None]
  - MENORRHAGIA [None]
  - MERALGIA PARAESTHETICA [None]
  - NEUROGENIC BLADDER [None]
  - RESTLESS LEGS SYNDROME [None]
